FAERS Safety Report 9280585 (Version 2)
Quarter: 2013Q2

REPORT INFORMATION
  Report Type: Report from Study
  Country: FR (occurrence: FR)
  Receive Date: 20130509
  Receipt Date: 20130612
  Transmission Date: 20140414
  Serious: Yes (Life-Threatening, Hospitalization)
  Sender: FDA-Public Use
  Company Number: FR-ROCHE-1221588

PATIENT
  Age: 72 Year
  Sex: Female
  Weight: 77 kg

DRUGS (6)
  1. CORTANCYL [Concomitant]
     Indication: PEMPHIGUS
     Route: 048
     Dates: start: 20110925
  2. XANAX [Concomitant]
     Indication: ANXIETY
     Route: 048
  3. IMOVANE [Concomitant]
     Indication: INSOMNIA
     Route: 048
  4. DOLIPRANE [Concomitant]
     Indication: PAIN
     Route: 048
  5. OROCAL D3 [Concomitant]
     Indication: OSTEOPOROSIS PROPHYLAXIS
     Route: 048
  6. RITUXIMAB [Suspect]
     Indication: PEMPHIGUS
     Route: 042
     Dates: start: 20111024, end: 20111107

REACTIONS (2)
  - Pulmonary embolism [Recovered/Resolved]
  - Venous thrombosis limb [Recovered/Resolved]
